FAERS Safety Report 18905751 (Version 2)
Quarter: 2021Q2

REPORT INFORMATION
  Report Type: Spontaneous
  Country: JP (occurrence: JP)
  Receive Date: 20210217
  Receipt Date: 20210505
  Transmission Date: 20210717
  Serious: Yes (Other)
  Sender: FDA-Public Use
  Company Number: JP-DSJP-DSJ-2021-104428

PATIENT
  Age: 90 Year
  Sex: Male

DRUGS (2)
  1. WARFARIN                           /00014803/ [Suspect]
     Active Substance: WARFARIN
     Indication: CARDIAC FAILURE
  2. WARFARIN                           /00014803/ [Suspect]
     Active Substance: WARFARIN
     Indication: ATRIAL FIBRILLATION
     Dosage: UNK
     Route: 048

REACTIONS (2)
  - Melaena [Unknown]
  - Adenocarcinoma [Unknown]
